FAERS Safety Report 10379177 (Version 2)
Quarter: 2014Q3

REPORT INFORMATION
  Report Type: Report from Study
  Country: RO (occurrence: RO)
  Receive Date: 20140812
  Receipt Date: 20140911
  Transmission Date: 20150326
  Serious: Yes (Other)
  Sender: FDA-Public Use
  Company Number: RO-GLAXOSMITHKLINE-B1021201A

PATIENT
  Age: 72 Year
  Sex: Male
  Weight: 72 kg

DRUGS (6)
  1. ACETYLSALICYLIC ACID [Concomitant]
     Active Substance: ASPIRIN
     Indication: ACUTE MYOCARDIAL INFARCTION
     Dosage: 125MG FOUR TIMES PER DAY
     Route: 048
     Dates: start: 20130426
  2. OMACOR [Suspect]
     Active Substance: OMEGA-3-ACID ETHYL ESTERS
     Indication: DRESSLER^S SYNDROME
     Dosage: 1000MG PER DAY
     Route: 048
     Dates: start: 20130513
  3. CLOPIDOGREL BISULPHATE [Concomitant]
     Active Substance: CLOPIDOGREL BISULFATE
     Indication: ACUTE MYOCARDIAL INFARCTION
     Dosage: 75MG FOUR TIMES PER DAY
     Route: 048
     Dates: start: 20130426
  4. PERINDOPRIL [Concomitant]
     Active Substance: PERINDOPRIL
     Indication: LEFT VENTRICULAR DYSFUNCTION
     Dosage: 10MG PER DAY
     Route: 048
     Dates: start: 20130426
  5. CARVEDILOL. [Concomitant]
     Active Substance: CARVEDILOL
     Indication: ACUTE MYOCARDIAL INFARCTION
     Dosage: 12.5MG TWICE PER DAY
     Route: 048
     Dates: start: 20130514
  6. ROSUVASTATIN [Concomitant]
     Active Substance: ROSUVASTATIN
     Indication: DYSLIPIDAEMIA
     Dosage: 40MG PER DAY
     Route: 048
     Dates: start: 20130426

REACTIONS (1)
  - Cardiac failure [Not Recovered/Not Resolved]

NARRATIVE: CASE EVENT DATE: 20131121
